FAERS Safety Report 9786219 (Version 5)
Quarter: 2015Q1

REPORT INFORMATION
  Report Type: Report from Study
  Country: JP (occurrence: JP)
  Receive Date: 20131227
  Receipt Date: 20150304
  Transmission Date: 20150721
  Serious: Yes (Hospitalization, Other)
  Sender: FDA-Public Use
  Company Number: JP-AMGEN-JPNCT2013090716

PATIENT
  Age: 96 Year
  Sex: Female
  Weight: 39 kg

DRUGS (12)
  1. LASIX [Concomitant]
     Active Substance: FUROSEMIDE
     Indication: CHRONIC KIDNEY DISEASE
     Dosage: UNK
     Route: 048
  2. GRAMALIL [Concomitant]
     Active Substance: TIAPRIDE HYDROCHLORIDE
     Dosage: UNK
     Route: 048
  3. NORVASC [Concomitant]
     Active Substance: AMLODIPINE BESYLATE
     Dosage: UNK
     Route: 048
  4. ZYLORIC [Concomitant]
     Active Substance: ALLOPURINOL
     Dosage: UNK
     Route: 048
  5. OMEPRAL                            /00661201/ [Concomitant]
     Active Substance: OMEPRAZOLE
     Dosage: UNK
     Route: 048
  6. DARBEPOETIN ALFA - KHK [Suspect]
     Active Substance: DARBEPOETIN ALFA
     Indication: NEPHROGENIC ANAEMIA
     Dosage: 60 MUG, Q4WK
     Route: 058
     Dates: start: 20111102
  7. MUCOSTA [Concomitant]
     Active Substance: REBAMIPIDE
     Dosage: UNK
     Route: 048
  8. AZILVA [Concomitant]
     Active Substance: AZILSARTAN KAMEDOXOMIL
     Dosage: UNK
     Route: 048
  9. AVAPRO [Concomitant]
     Active Substance: IRBESARTAN
     Dosage: UNK
     Route: 048
  10. BAYASPIRIN [Concomitant]
     Active Substance: ASPIRIN
     Dosage: UNK
     Route: 048
  11. PREMINENT [Concomitant]
     Active Substance: HYDROCHLOROTHIAZIDE\LOSARTAN POTASSIUM
     Dosage: UNK
     Route: 048
  12. LUPRAC [Concomitant]
     Active Substance: TORSEMIDE
     Indication: CHRONIC KIDNEY DISEASE
     Dosage: UNK
     Route: 048

REACTIONS (13)
  - Bronchitis [Recovering/Resolving]
  - Constipation [Recovered/Resolved]
  - Conjunctivitis [Recovered/Resolved]
  - Diarrhoea [Recovering/Resolving]
  - Skin erosion [Recovered/Resolved]
  - Pneumonia [Recovered/Resolved]
  - Blood creatinine increased [Recovered/Resolved]
  - Blood pressure increased [Recovering/Resolving]
  - Dehydration [Recovered/Resolved]
  - Decreased appetite [Recovered/Resolved]
  - Bronchitis [Recovering/Resolving]
  - Constipation [Recovering/Resolving]
  - Skin erosion [Recovered/Resolved]

NARRATIVE: CASE EVENT DATE: 20111120
